FAERS Safety Report 11789113 (Version 1)
Quarter: 2015Q4

REPORT INFORMATION
  Report Type: Spontaneous
  Country: NL (occurrence: NL)
  Receive Date: 20151201
  Receipt Date: 20151201
  Transmission Date: 20160305
  Serious: Yes (Other)
  Sender: FDA-Public Use
  Company Number: NL-AUROBINDO-AUR-APL-2015-10739

PATIENT
  Age: 52 Year

DRUGS (3)
  1. AMOXICILLIN. [Suspect]
     Active Substance: AMOXICILLIN
     Indication: PRODUCT USED FOR UNKNOWN INDICATION
     Dosage: 500 MG, UNK
     Route: 065
     Dates: start: 20150803
  2. METRONIDAZOLE. [Suspect]
     Active Substance: METRONIDAZOLE
     Indication: PRODUCT USED FOR UNKNOWN INDICATION
     Dosage: 500 MG, UNK
     Route: 065
     Dates: start: 20150803
  3. ALLOPURINOL SANDOZ [Suspect]
     Active Substance: ALLOPURINOL
     Indication: PRODUCT USED FOR UNKNOWN INDICATION
     Dosage: 100 MG, ONCE A DAY
     Route: 065
     Dates: start: 2008

REACTIONS (7)
  - Wound [Recovering/Resolving]
  - Rash generalised [Recovering/Resolving]
  - Blister [Recovering/Resolving]
  - Skin reaction [Recovering/Resolving]
  - Drug interaction [Recovering/Resolving]
  - Skin swelling [Recovering/Resolving]
  - Pruritus [Recovering/Resolving]

NARRATIVE: CASE EVENT DATE: 20150803
